FAERS Safety Report 22936086 (Version 2)
Quarter: 2023Q4

REPORT INFORMATION
  Report Type: Spontaneous
  Country: US (occurrence: US)
  Receive Date: 20230912
  Receipt Date: 20231013
  Transmission Date: 20240110
  Serious: No
  Sender: FDA-Public Use
  Company Number: US-BIOGEN-2023BI01225232

PATIENT
  Sex: Male

DRUGS (4)
  1. TECFIDERA [Suspect]
     Active Substance: DIMETHYL FUMARATE
     Indication: Product used for unknown indication
     Route: 050
  2. AMLODIPINE [Concomitant]
     Active Substance: AMLODIPINE BESYLATE
     Route: 050
  3. FERROUS SULFATE [Concomitant]
     Active Substance: FERROUS SULFATE
     Route: 050
  4. PREDNISONE [Concomitant]
     Active Substance: PREDNISONE
     Route: 050

REACTIONS (5)
  - Therapeutic product effect decreased [Unknown]
  - Vision blurred [Unknown]
  - Muscle tightness [Unknown]
  - Pain [Unknown]
  - Headache [Unknown]
